FAERS Safety Report 7908124-9 (Version None)
Quarter: 2011Q4

REPORT INFORMATION
  Report Type: 
  Country: None (occurrence: None)
  Receive Date: 20111111
  Receipt Date: 20111103
  Transmission Date: 20120403
  Serious: No
  Sender: FDA-Public Use
  Company Number: US-BIOGENIDEC-2011BI001151

PATIENT
  Age: 41 Year
  Sex: Female

DRUGS (2)
  1. TYSABRI [Suspect]
     Indication: MULTIPLE SCLEROSIS
     Route: 042
     Dates: start: 20090327, end: 20100709
  2. TYSABRI [Suspect]
     Route: 042
     Dates: start: 20110121

REACTIONS (7)
  - ARTHRALGIA [None]
  - WEIGHT INCREASED [None]
  - MENISCUS LESION [None]
  - GAIT DISTURBANCE [None]
  - VISUAL IMPAIRMENT [None]
  - FALL [None]
  - STRESS [None]
